FAERS Safety Report 9265024 (Version 1)
Quarter: 2013Q2

REPORT INFORMATION
  Report Type: Spontaneous
  Country: GB (occurrence: GB)
  Receive Date: 20130501
  Receipt Date: 20130501
  Transmission Date: 20140414
  Serious: Yes (Death)
  Sender: FDA-Public Use
  Company Number: GB-MPIJNJ-2013-02281

PATIENT
  Sex: 0

DRUGS (6)
  1. VELCADE [Suspect]
     Indication: PLASMA CELL MYELOMA
     Dosage: 1.3 MG/M2, 2/WEEK
     Route: 065
     Dates: start: 20121122, end: 20130121
  2. DEXAMETHASONE [Concomitant]
     Indication: PLASMA CELL MYELOMA
     Dosage: 40 MG, UNK
     Dates: start: 20121122, end: 20130121
  3. ACICLOVIR [Concomitant]
     Dosage: 400 MG, UNK
     Dates: start: 20121122, end: 20130121
  4. COTRIMOXAZOLE [Concomitant]
     Dosage: 480 MG, UNK
     Dates: start: 20121122, end: 20130121
  5. LANSOPRAZOLE [Concomitant]
     Dosage: 30 MG, UNK
     Dates: start: 20121122, end: 20130121
  6. ALLOPURINOL [Concomitant]
     Dosage: 100 MG, UNK
     Dates: start: 20121122, end: 20130121

REACTIONS (1)
  - Drug ineffective [Fatal]
